FAERS Safety Report 17693475 (Version 1)
Quarter: 2020Q2

REPORT INFORMATION
  Report Type: Spontaneous
  Country: US (occurrence: US)
  Receive Date: 20200422
  Receipt Date: 20200422
  Transmission Date: 20200714
  Serious: Yes (Hospitalization)
  Sender: FDA-Public Use
  Company Number: US-RADIUS HEALTH INC.-2020US001009

PATIENT
  Age: 84 Year
  Sex: Female

DRUGS (2)
  1. TYMLOS [Suspect]
     Active Substance: ABALOPARATIDE
     Indication: OSTEOPOROSIS POSTMENOPAUSAL
     Dosage: 80 MCG, QD
     Route: 058
     Dates: start: 20200310
  2. TYMLOS [Suspect]
     Active Substance: ABALOPARATIDE
     Indication: SPINAL FRACTURE

REACTIONS (7)
  - Abdominal discomfort [Unknown]
  - Dizziness [Unknown]
  - Product quality issue [Unknown]
  - Product use issue [Unknown]
  - Incorrect product administration duration [Unknown]
  - Peroneal nerve palsy [Recovered/Resolved]
  - Product storage error [Unknown]

NARRATIVE: CASE EVENT DATE: 202003
